FAERS Safety Report 14154361 (Version 1)
Quarter: 2017Q4

REPORT INFORMATION
  Report Type: Spontaneous
  Country: US (occurrence: US)
  Receive Date: 20171102
  Receipt Date: 20171102
  Transmission Date: 20180321
  Serious: Yes (Other)
  Sender: FDA-Public Use
  Company Number: US-PFIZER INC-2017468115

PATIENT
  Sex: Male

DRUGS (1)
  1. BOSULIF [Suspect]
     Active Substance: BOSUTINIB MONOHYDRATE
     Dosage: 500 MG, DAILY
     Dates: start: 20171004, end: 20171027

REACTIONS (5)
  - Decreased appetite [Unknown]
  - Lethargy [Unknown]
  - Muscle spasms [Unknown]
  - Fatigue [Unknown]
  - Diarrhoea [Unknown]
